FAERS Safety Report 7029411-5 (Version None)
Quarter: 2010Q3

REPORT INFORMATION
  Report Type: 
  Country: None (occurrence: None)
  Receive Date: 20100924
  Receipt Date: 20100209
  Transmission Date: 20110219
  Serious: Yes (Disabling, Other)
  Sender: FDA-Public Use
  Company Number: WAES 1002USA01513

PATIENT
  Sex: Female

DRUGS (1)
  1. VYTORIN [Suspect]
     Indication: BLOOD CHOLESTEROL INCREASED
     Dosage: PO
     Route: 048
     Dates: start: 20080601

REACTIONS (1)
  - ADVERSE EVENT [None]
